FAERS Safety Report 14554547 (Version 1)
Quarter: 2018Q1

REPORT INFORMATION
  Report Type: Spontaneous
  Country: TR (occurrence: TR)
  Receive Date: 20180220
  Receipt Date: 20180220
  Transmission Date: 20180509
  Serious: Yes (Other)
  Sender: FDA-Public Use
  Company Number: PHHY2018TR028088

PATIENT
  Age: 68 Year
  Sex: Male

DRUGS (1)
  1. FORADIL [Suspect]
     Active Substance: FORMOTEROL FUMARATE
     Indication: CHRONIC OBSTRUCTIVE PULMONARY DISEASE
     Dosage: 400 UG, UNK
     Route: 065

REACTIONS (4)
  - Vertigo [Unknown]
  - Cardiac disorder [Unknown]
  - Dyspnoea [Unknown]
  - Drug ineffective [Unknown]
